FAERS Safety Report 13437192 (Version 1)
Quarter: 2017Q2

REPORT INFORMATION
  Report Type: Spontaneous
  Country: US (occurrence: US)
  Receive Date: 20170413
  Receipt Date: 20170413
  Transmission Date: 20170830
  Serious: No
  Sender: FDA-Public Use
  Company Number: US-SA-2016SA188628

PATIENT
  Age: 85 Year
  Sex: Male

DRUGS (3)
  1. ALLEGRA D-12 HOUR [Suspect]
     Active Substance: FEXOFENADINE HYDROCHLORIDE\PSEUDOEPHEDRINE HYDROCHLORIDE
     Indication: HEAD DISCOMFORT
     Dosage: START DATE: ABOUT 2 WEEKS AGO?LAST DATE: LAST THURSDAY
     Route: 065
  2. ALLEGRA D-12 HOUR [Suspect]
     Active Substance: FEXOFENADINE HYDROCHLORIDE\PSEUDOEPHEDRINE HYDROCHLORIDE
     Indication: RHINORRHOEA
     Dosage: START DATE: ABOUT 2 WEEKS AGO?LAST DATE: LAST THURSDAY
     Route: 065
  3. ALLEGRA D-12 HOUR [Suspect]
     Active Substance: FEXOFENADINE HYDROCHLORIDE\PSEUDOEPHEDRINE HYDROCHLORIDE
     Indication: MULTIPLE ALLERGIES
     Dosage: START DATE: ABOUT 2 WEEKS AGO?LAST DATE: LAST THURSDAY
     Route: 065

REACTIONS (2)
  - Headache [Recovered/Resolved]
  - Pollakiuria [Recovered/Resolved]
